FAERS Safety Report 4943392-7 (Version None)
Quarter: 2006Q1

REPORT INFORMATION
  Report Type: 
  Country: None (occurrence: None)
  Receive Date: 20060309
  Receipt Date: 20060224
  Transmission Date: 20060701
  Serious: Yes (Death)
  Sender: FDA-Public Use
  Company Number: 2006031023

PATIENT
  Sex: Female

DRUGS (1)
  1. BEXTRA [Suspect]
     Indication: ILL-DEFINED DISORDER
     Dates: start: 20030101

REACTIONS (2)
  - ACUTE MYOCARDIAL INFARCTION [None]
  - CARDIOVASCULAR DISORDER [None]
